FAERS Safety Report 7646687-1 (Version None)
Quarter: 2011Q3

REPORT INFORMATION
  Report Type: 
  Country: None (occurrence: None)
  Receive Date: 20110801
  Receipt Date: 20110720
  Transmission Date: 20111222
  Serious: Yes (Hospitalization, Other)
  Sender: FDA-Public Use
  Company Number: CA-JNJFOC-20100601381

PATIENT
  Sex: Female
  Weight: 111 kg

DRUGS (2)
  1. REMICADE [Suspect]
     Route: 042
     Dates: start: 20091016
  2. REMICADE [Suspect]
     Indication: PSORIASIS
     Route: 042
     Dates: start: 20100310

REACTIONS (1)
  - BREAST CANCER [None]
